FAERS Safety Report 6661341-0 (Version None)
Quarter: 2010Q1

REPORT INFORMATION
  Report Type: 
  Country: None (occurrence: None)
  Receive Date: 20100331
  Receipt Date: 20100322
  Transmission Date: 20100710
  Serious: Yes (Other)
  Sender: FDA-Public Use
  Company Number: PHHY2010US11762

PATIENT
  Sex: Female

DRUGS (1)
  1. VIVELLE-DOT [Suspect]
     Dosage: 0.1
     Route: 062
     Dates: start: 20020101

REACTIONS (4)
  - CARDIAC DISORDER [None]
  - DRUG INEFFECTIVE [None]
  - HOT FLUSH [None]
  - HYPERHIDROSIS [None]
